FAERS Safety Report 9154247 (Version 1)
Quarter: 2013Q1

REPORT INFORMATION
  Report Type: Spontaneous
  Country: US (occurrence: US)
  Receive Date: 20130311
  Receipt Date: 20130311
  Transmission Date: 20140127
  Serious: Yes (Disabling, Other)
  Sender: FDA-Public Use
  Company Number: US-BRISTOL-MYERS SQUIBB COMPANY-17434077

PATIENT
  Age: 61 Year
  Sex: Male

DRUGS (1)
  1. ABATACEPT SUBQ INJECTION 125MG/ML [Suspect]
     Dosage: RECENT DOSE 23FEB2013
     Route: 058

REACTIONS (2)
  - Arthritis [Unknown]
  - Cardiac failure congestive [Unknown]
